FAERS Safety Report 16665048 (Version 1)
Quarter: 2019Q3

REPORT INFORMATION
  Report Type: Spontaneous
  Country: US (occurrence: US)
  Receive Date: 20190803
  Receipt Date: 20190803
  Transmission Date: 20191004
  Serious: Yes (Other)
  Sender: FDA-Public Use
  Company Number: US-ACCORD-071857

PATIENT
  Age: 63 Year
  Sex: Female

DRUGS (9)
  1. LASIX [Concomitant]
     Active Substance: FUROSEMIDE
  2. CARBOPLATIN. [Suspect]
     Active Substance: CARBOPLATIN
     Indication: BREAST CANCER RECURRENT
     Dates: start: 20150115, end: 20150504
  3. HERCEPTIN [Suspect]
     Active Substance: TRASTUZUMAB
     Indication: BREAST CANCER RECURRENT
     Dates: start: 20150115, end: 20150504
  4. DOCETAXEL ACCORD [Suspect]
     Active Substance: DOCETAXEL
     Indication: BREAST CANCER RECURRENT
     Dates: start: 20150115, end: 20150504
  5. MELOXICAM. [Concomitant]
     Active Substance: MELOXICAM
  6. LATANOPROST. [Concomitant]
     Active Substance: LATANOPROST
  7. METFORMIN [Concomitant]
     Active Substance: METFORMIN HYDROCHLORIDE
  8. RAMIPRIL. [Concomitant]
     Active Substance: RAMIPRIL
  9. POTASSIUM [Concomitant]
     Active Substance: POTASSIUM

REACTIONS (1)
  - Alopecia [Not Recovered/Not Resolved]

NARRATIVE: CASE EVENT DATE: 201501
